FAERS Safety Report 19216928 (Version 1)
Quarter: 2021Q2

REPORT INFORMATION
  Report Type: Spontaneous
  Country: US (occurrence: US)
  Receive Date: 20210505
  Receipt Date: 20210505
  Transmission Date: 20210717
  Serious: No
  Sender: FDA-Public Use
  Company Number: None

PATIENT
  Age: 71 Year
  Sex: Female
  Weight: 56.25 kg

DRUGS (4)
  1. FLONASE [Concomitant]
     Active Substance: FLUTICASONE PROPIONATE
  2. VITAMIN B [Concomitant]
     Active Substance: VITAMIN B
  3. ALENDRONATE SODIUM TABLETS [Suspect]
     Active Substance: ALENDRONATE SODIUM
     Indication: OSTEOPENIA
     Dosage: ?          QUANTITY:12 TABLET(S);OTHER FREQUENCY:WEEKLY;?
     Route: 048
     Dates: start: 20210413, end: 20210505
  4. SAME PROBIOTIC STOOL SOFTNER [Concomitant]

REACTIONS (3)
  - Musculoskeletal stiffness [None]
  - Pain [None]
  - Gait disturbance [None]

NARRATIVE: CASE EVENT DATE: 20210505
